FAERS Safety Report 7411331-5 (Version None)
Quarter: 2011Q2

REPORT INFORMATION
  Report Type: 
  Country: None (occurrence: None)
  Receive Date: 20110413
  Receipt Date: 20110404
  Transmission Date: 20111010
  Serious: Yes (Other)
  Sender: FDA-Public Use
  Company Number: US-RB-025185-11

PATIENT
  Sex: Male

DRUGS (3)
  1. SUBOXONE [Suspect]
     Route: 064
     Dates: start: 20100801, end: 20110301
  2. SUBOXONE [Suspect]
     Indication: DRUG DEPENDENCE
     Route: 063
     Dates: start: 20110319
  3. SUBOXONE [Suspect]
     Dosage: TAPERED TO 2 MG AT TIME OF DELIVERY
     Route: 064
     Dates: start: 20110301, end: 20110319

REACTIONS (3)
  - DRUG EXPOSURE VIA BREAST MILK [None]
  - DRUG EXPOSURE DURING PREGNANCY [None]
  - PREMATURE BABY [None]
